FAERS Safety Report 15170924 (Version 3)
Quarter: 2018Q4

REPORT INFORMATION
  Report Type: Report from Study
  Country: US (occurrence: US)
  Receive Date: 20180720
  Receipt Date: 20181005
  Transmission Date: 20190204
  Serious: Yes (Disabling)
  Sender: FDA-Public Use
  Company Number: US-SA-2018SA194881

PATIENT
  Age: 72 Year
  Sex: Female

DRUGS (18)
  1. OXYBUTYNIN [OXYBUTYNIN HYDROCHLORIDE] [Concomitant]
     Dosage: 5 MG
  2. BACLOFEN. [Concomitant]
     Active Substance: BACLOFEN
     Dosage: 20 MG
  3. BIOTIN [Concomitant]
     Active Substance: BIOTIN
     Dosage: 5000 UG
  4. CALCIUM [Concomitant]
     Active Substance: CALCIUM
     Dosage: 600 UG
  5. ADDERALL [Concomitant]
     Active Substance: AMPHETAMINE ASPARTATE\AMPHETAMINE SULFATE\DEXTROAMPHETAMINE SACCHARATE\DEXTROAMPHETAMINE SULFATE
     Dosage: 5 MG
  6. LEVOTHYROXIN [Concomitant]
     Active Substance: LEVOTHYROXINE
     Dosage: 200 UG
  7. ASPIRIN N [Concomitant]
     Active Substance: ASPIRIN
     Dosage: 81 MG
  8. CURCUMIN [Concomitant]
     Active Substance: CURCUMIN
  9. PROTONIX [OMEPRAZOLE] [Concomitant]
     Dosage: 40 MG
  10. LETROZOLE. [Concomitant]
     Active Substance: LETROZOLE
     Dosage: 2.5 MG
  11. ATORVASTATIN [Concomitant]
     Active Substance: ATORVASTATIN
     Dosage: 80 MG
  12. VITAMIN D3 [Concomitant]
     Active Substance: CHOLECALCIFEROL
     Dosage: 10000 U
  13. CITALOPRAM [Concomitant]
     Active Substance: CITALOPRAM HYDROBROMIDE
     Dosage: 40 MG
  14. TERIFLUNOMIDE. [Suspect]
     Active Substance: TERIFLUNOMIDE
     Indication: MULTIPLE SCLEROSIS
     Dosage: 14 MG, QD
     Route: 048
     Dates: start: 201803
  15. OMEGA 3 [DOCOSAHEXAENOIC ACID;EICOSAPENTAENOIC ACID;TOCOPHEROL] [Concomitant]
     Dosage: 1200 MG
  16. VITAMIN B12 [Concomitant]
     Active Substance: CYANOCOBALAMIN
     Dosage: 1000 UG
  17. AMLODIPINE [Concomitant]
     Active Substance: AMLODIPINE BESYLATE
     Dosage: 10 MG
  18. ZOLPIDEM TARTRATE. [Concomitant]
     Active Substance: ZOLPIDEM TARTRATE
     Dosage: 10 MG

REACTIONS (6)
  - Impaired driving ability [Not Recovered/Not Resolved]
  - Fall [Recovered/Resolved]
  - Wheelchair user [Not Recovered/Not Resolved]
  - Patella fracture [Recovered/Resolved]
  - Alopecia [Not Recovered/Not Resolved]
  - Oedema [Not Recovered/Not Resolved]

NARRATIVE: CASE EVENT DATE: 2018
